FAERS Safety Report 9858473 (Version 3)
Quarter: 2014Q2

REPORT INFORMATION
  Report Type: Spontaneous
  Country: GB (occurrence: GB)
  Receive Date: 20140131
  Receipt Date: 20140610
  Transmission Date: 20141212
  Serious: Yes (Death, Other)
  Sender: FDA-Public Use
  Company Number: GB-MPIJNJ-2014JNJ000186

PATIENT
  Sex: 0

DRUGS (12)
  1. VELCADE [Suspect]
     Indication: PLASMA CELL MYELOMA
     Dosage: UNK
     Route: 058
     Dates: start: 20131121, end: 20131223
  2. OMEPRAZOLE [Concomitant]
     Indication: PROPHYLAXIS AGAINST GASTROINTESTINAL ULCER
     Dosage: 20 MG, QD
     Dates: start: 20130910
  3. DOMPERIDONE [Concomitant]
     Indication: MALAISE
     Dosage: 20 MG, QOD
     Dates: start: 20130910
  4. PARACETAMOL [Concomitant]
     Indication: PAIN
     Dosage: 100 MG, QD
     Dates: start: 20130910
  5. THALIDOMIDE [Concomitant]
     Indication: PLASMA CELL MYELOMA
     Dosage: 100 MG, QD
     Dates: start: 20130910
  6. LAXIDO [Concomitant]
     Indication: CONSTIPATION
     Dosage: UNK
     Dates: start: 20130910
  7. FUROSEMIDE [Concomitant]
     Indication: FLUID RETENTION
     Dosage: 40 MG, QD
     Dates: start: 20130910
  8. FUROSEMIDE [Concomitant]
     Indication: PULMONARY HYPERTENSION
  9. DEXAMETHAZONE [Concomitant]
     Indication: PLASMA CELL MYELOMA
     Dosage: 20 MG, UNK
     Dates: start: 20130910
  10. CYCLOPHOSPHAMIDE [Concomitant]
     Indication: PLASMA CELL MYELOMA
     Dosage: 500 MG, 1/WEEK
     Dates: start: 20130910
  11. TRAMADOL [Concomitant]
     Indication: PAIN
     Dosage: 50 MG, PRN
     Dates: start: 20130910
  12. ENOXAPARIN [Concomitant]
     Indication: THROMBOSIS PROPHYLAXIS
     Dosage: 40 MG, UNK
     Route: 058
     Dates: start: 20130910

REACTIONS (6)
  - Drug ineffective [Fatal]
  - Disease progression [Fatal]
  - Cauda equina syndrome [Unknown]
  - Lower respiratory tract infection [Unknown]
  - Hypercalcaemia [Unknown]
  - Pulmonary hypertension [Unknown]
